FAERS Safety Report 13701975 (Version 1)
Quarter: 2017Q2

REPORT INFORMATION
  Report Type: Spontaneous
  Country: US (occurrence: US)
  Receive Date: 20170629
  Receipt Date: 20170629
  Transmission Date: 20170830
  Serious: Yes (Other)
  Sender: FDA-Public Use
  Company Number: US-JUBILANT CADISTA PHARMACEUTICALS-2017JUB00221

PATIENT
  Age: 65 Year
  Sex: Female
  Weight: 69.3 kg

DRUGS (15)
  1. HYDROCORTISONE. [Concomitant]
     Active Substance: HYDROCORTISONE
     Dosage: 15 MG, 1X/DAY
     Route: 048
  2. CALCIUM CITRATE [Concomitant]
     Active Substance: CALCIUM CITRATE
     Dosage: 630 MG, 1X/DAY
     Route: 048
  3. MAGNESIUM [Concomitant]
     Active Substance: MAGNESIUM
     Dosage: 250 MG, 1X/DAY
     Route: 048
  4. STRONTIUM CHLORIDE [Concomitant]
     Active Substance: STRONTIUM CHLORIDE
     Dosage: 680 MG, 1X/DAY
     Route: 048
  5. GLUCOSAMINE 1500 COMPLEX (GLUCOSAMINE-CONDROINTIN-VITAMIN C) [Concomitant]
     Dosage: 2000 MG, 1X/DAY
     Route: 048
  6. MECLIZINE HYDROCHLORIDE. [Suspect]
     Active Substance: MECLIZINE HYDROCHLORIDE
     Indication: VERTIGO
     Dosage: UNK
     Dates: start: 2017
  7. LEVOTHYROXINE. [Concomitant]
     Active Substance: LEVOTHYROXINE
     Dosage: 137 ?G, 2X/WEEK
     Route: 048
  8. FISH OIL (OMEGA-3 FATTY ACIDS) [Concomitant]
     Dosage: 1200 MG, 1X/DAY
     Route: 048
  9. HYDROCORTISONE. [Concomitant]
     Active Substance: HYDROCORTISONE
     Dosage: 5 MG, 2X/DAY LUNCHTIME AND 3PM
  10. VITAMIN B COMPLEX [Concomitant]
     Active Substance: CYANOCOBALAMIN\DEXPANTHENOL\NIACINAMIDE\PYRIDOXINE HYDROCHLORIDE\RIBOFLAVIN 5^-PHOSPHATE SODIUM\THIAMINE HYDROCHLORIDE\VITAMIN B COMPLEX
     Dosage: 1 TABLETS, 1X/DAY
     Route: 048
  11. VITAMIN D [Concomitant]
     Active Substance: CHOLECALCIFEROL
     Dosage: 4000 IU, 1X/DAY
     Route: 048
  12. MULTIVITAMIN [Concomitant]
     Active Substance: VITAMINS
     Dosage: 1 TABLETS, 1X/DAY
     Route: 048
  13. GENOTROPIN [Concomitant]
     Active Substance: SOMATROPIN
     Dosage: 0.2 MG, 1X/DAY
     Route: 058
     Dates: start: 2007
  14. DEXAMETHASONE. [Concomitant]
     Active Substance: DEXAMETHASONE
     Dosage: 1 ML, AS NEEDED
     Route: 030
  15. LEVOTHYROXINE. [Concomitant]
     Active Substance: LEVOTHYROXINE
     Dosage: 125 ?G, 5X/WEEK
     Route: 048

REACTIONS (8)
  - Feeling abnormal [Unknown]
  - Fatigue [Unknown]
  - Headache [Unknown]
  - Dry skin [Unknown]
  - Hypertension [Recovered/Resolved]
  - Chills [Recovered/Resolved]
  - Diarrhoea [Recovered/Resolved]
  - Dyspepsia [Recovered/Resolved]

NARRATIVE: CASE EVENT DATE: 2017
